FAERS Safety Report 6975428-6 (Version None)
Quarter: 2010Q3

REPORT INFORMATION
  Report Type: 
  Country: None (occurrence: None)
  Receive Date: 20100910
  Receipt Date: 20090507
  Transmission Date: 20110219
  Serious: No
  Sender: FDA-Public Use
  Company Number: US-WYE-H08654709

PATIENT
  Sex: Male
  Weight: 98.97 kg

DRUGS (14)
  1. PRISTIQ [Suspect]
     Indication: ANXIETY
     Route: 048
     Dates: start: 20090305, end: 20090312
  2. PRISTIQ [Suspect]
     Indication: PANIC ATTACK
  3. GLIPIZIDE [Concomitant]
  4. ACETYLSALICYLIC ACID [Concomitant]
  5. PLAVIX [Concomitant]
  6. AMLODIPINE [Concomitant]
  7. METFORMIN [Concomitant]
  8. MAGNESIUM OXIDE [Concomitant]
  9. PRAVACHOL [Concomitant]
  10. TESSALON [Concomitant]
  11. XANAX [Concomitant]
  12. LOPRESSOR [Concomitant]
  13. AMBIEN [Concomitant]
  14. OLMESARTAN MEDOXOMIL [Concomitant]

REACTIONS (2)
  - NIGHTMARE [None]
  - SOMNAMBULISM [None]
